FAERS Safety Report 10310355 (Version 1)
Quarter: 2014Q3

REPORT INFORMATION
  Report Type: Spontaneous
  Country: US (occurrence: None)
  Receive Date: 20140716
  Receipt Date: 20140716
  Transmission Date: 20150326
  Serious: Yes (Disabling)
  Sender: FDA-Public Use
  Company Number: None

PATIENT
  Age: 43 Year
  Sex: Female
  Weight: 101.61 kg

DRUGS (1)
  1. FETZIMA [Suspect]
     Active Substance: LEVOMILNACIPRAN HYDROCHLORIDE
     Indication: MAJOR DEPRESSION
     Dosage: ONE 80 MG CAPSULE; ONCE DAILY
     Route: 048
     Dates: start: 20140514, end: 20140714

REACTIONS (3)
  - Abdominal pain [None]
  - Gastrointestinal motility disorder [None]
  - Constipation [None]

NARRATIVE: CASE EVENT DATE: 20140710
